FAERS Safety Report 7796642-6 (Version None)
Quarter: 2011Q3

REPORT INFORMATION
  Report Type: 
  Country: None (occurrence: None)
  Receive Date: 20110930
  Receipt Date: 20110922
  Transmission Date: 20111222
  Serious: No
  Sender: FDA-Public Use
  Company Number: US-006197

PATIENT
  Sex: Female
  Weight: 124.7392 kg

DRUGS (5)
  1. TRANEXAMIC ACID [Suspect]
     Indication: MENORRHAGIA
     Dosage: 1300 MG TID ORAL
     Route: 048
     Dates: start: 20110301, end: 20110701
  2. TRANEXAMIC ACID [Suspect]
     Indication: DYSMENORRHOEA
     Dosage: 1300 MG TID ORAL
     Route: 048
     Dates: start: 20110301, end: 20110701
  3. EFFEXOR XR [Concomitant]
  4. IBUPROFEN [Concomitant]
  5. WELLBUTRIN XL [Concomitant]

REACTIONS (2)
  - CHEST PAIN [None]
  - ANXIETY [None]
